FAERS Safety Report 6584925-7 (Version None)
Quarter: 2010Q1

REPORT INFORMATION
  Report Type: 
  Country: None (occurrence: None)
  Receive Date: 20100217
  Receipt Date: 20100215
  Transmission Date: 20100710
  Serious: Yes (Hospitalization, Other)
  Sender: FDA-Public Use
  Company Number: AU-ROXANE LABORATORIES, INC.-2010-RO-00163RO

PATIENT
  Age: 53 Year
  Sex: Female

DRUGS (3)
  1. LEVETIRACETAM [Suspect]
     Indication: CONVULSION
     Dosage: 500 MG
  2. VALPROATE SODIUM [Suspect]
     Indication: CONVULSION
     Dosage: 1000 MG
  3. VALPROATE SODIUM [Suspect]
     Dosage: 2000 MG

REACTIONS (2)
  - PSYCHOTIC DISORDER [None]
  - STATUS EPILEPTICUS [None]
